FAERS Safety Report 8082045-6 (Version None)
Quarter: 2012Q1

REPORT INFORMATION
  Report Type: 
  Country: None (occurrence: None)
  Receive Date: 20120130
  Receipt Date: 20120116
  Transmission Date: 20120608
  Serious: Yes (Hospitalization)
  Sender: FDA-Public Use
  Company Number: JP-ELI_LILLY_AND_COMPANY-JP201111006573

PATIENT
  Age: 75 Year
  Sex: Female

DRUGS (1)
  1. FORTEO [Suspect]
     Dosage: UNK
     Route: 058
     Dates: end: 20120102

REACTIONS (5)
  - FALL [None]
  - HUMERUS FRACTURE [None]
  - INJECTION SITE HAEMATOMA [None]
  - INJECTION SITE EXTRAVASATION [None]
  - CONTUSION [None]
